FAERS Safety Report 7209863-8 (Version None)
Quarter: 2011Q1

REPORT INFORMATION
  Report Type: 
  Country: None (occurrence: None)
  Receive Date: 20110104
  Receipt Date: 20101220
  Transmission Date: 20110831
  Serious: No
  Sender: FDA-Public Use
  Company Number: US-BAYER-2010-009246

PATIENT
  Sex: Female

DRUGS (1)
  1. ULTRAVIST INJECTION [Suspect]
     Indication: COMPUTERISED TOMOGRAM
     Dosage: 300 MG/ML, ONCE
     Route: 042
     Dates: start: 20101216, end: 20101216

REACTIONS (5)
  - SNEEZING [None]
  - URTICARIA [None]
  - NASAL CONGESTION [None]
  - PRURITUS [None]
  - PAIN IN JAW [None]
